FAERS Safety Report 7214090-4 (Version None)
Quarter: 2010Q4

REPORT INFORMATION
  Report Type: 
  Country: None (occurrence: None)
  Receive Date: 20101227
  Receipt Date: 20101217
  Transmission Date: 20110411
  Serious: Yes (Disabling)
  Sender: FDA-Public Use
  Company Number: 0215545

PATIENT
  Age: 39 Year
  Sex: Male

DRUGS (1)
  1. TACHOSIL [Suspect]
     Indication: HAEMOSTASIS
     Dosage: 1 DOSAGE FORMS TOPICAL
     Route: 061
     Dates: start: 20101213, end: 20101213

REACTIONS (3)
  - DYSPNOEA [None]
  - IATROGENIC INJURY [None]
  - VOCAL CORD PARALYSIS [None]
